FAERS Safety Report 11739893 (Version 1)
Quarter: 2015Q4

REPORT INFORMATION
  Report Type: Report from Study
  Country: US (occurrence: US)
  Receive Date: 20151113
  Receipt Date: 20151113
  Transmission Date: 20160304
  Serious: Yes (Hospitalization, Other)
  Sender: FDA-Public Use
  Company Number: US-ABBVIE-15P-163-1463819-00

PATIENT
  Age: 50 Year
  Sex: Male
  Weight: 90.8 kg

DRUGS (3)
  1. LEVOTHYROXINE. [Concomitant]
     Active Substance: LEVOTHYROXINE
     Indication: HYPOTHYROIDISM
  2. PREVACID [Concomitant]
     Active Substance: LANSOPRAZOLE
     Indication: GASTROOESOPHAGEAL REFLUX DISEASE
  3. VIEKIRA PAK [Suspect]
     Active Substance: DASABUVIR\OMBITASVIR\PARITAPREVIR\RITONAVIR
     Indication: CHRONIC HEPATITIS C
     Route: 048
     Dates: start: 20150608, end: 20150830

REACTIONS (5)
  - Pancreatitis [Not Recovered/Not Resolved]
  - Thyroid disorder [Unknown]
  - Hepatitis C RNA increased [Not Recovered/Not Resolved]
  - Tinnitus [Not Recovered/Not Resolved]
  - Diarrhoea [Not Recovered/Not Resolved]

NARRATIVE: CASE EVENT DATE: 2015
